FAERS Safety Report 10214313 (Version 1)
Quarter: 2014Q2

REPORT INFORMATION
  Report Type: Spontaneous
  Country: US (occurrence: US)
  Receive Date: 20140603
  Receipt Date: 20140603
  Transmission Date: 20141212
  Serious: No
  Sender: FDA-Public Use
  Company Number: US-009507513-1405USA010633

PATIENT
  Age: 21 Year
  Sex: Male
  Weight: 63.49 kg

DRUGS (2)
  1. CLARITIN REDITABS [Suspect]
     Indication: SEASONAL ALLERGY
     Dosage: 20 MG, UNKNOWN
     Route: 048
     Dates: start: 20140507
  2. CLARITIN REDITABS [Suspect]
     Dosage: 10 MG, QD
     Route: 048

REACTIONS (1)
  - Accidental overdose [Not Recovered/Not Resolved]
